FAERS Safety Report 14699780 (Version 1)
Quarter: 2018Q1

REPORT INFORMATION
  Report Type: Spontaneous
  Country: US (occurrence: US)
  Receive Date: 20180330
  Receipt Date: 20180330
  Transmission Date: 20180509
  Serious: Yes (Hospitalization)
  Sender: FDA-Public Use
  Company Number: US-PFIZER INC-2018130252

PATIENT
  Age: 60 Year
  Sex: Male

DRUGS (1)
  1. VFEND [Suspect]
     Active Substance: VORICONAZOLE
     Indication: PROPHYLAXIS
     Dosage: 200MG TABLET, 1 TABLET EVERY 12 HOURS BY MOUTH
     Route: 048

REACTIONS (1)
  - Acute myeloid leukaemia recurrent [Unknown]
